FAERS Safety Report 6611891-8 (Version None)
Quarter: 2010Q1

REPORT INFORMATION
  Report Type: 
  Country: None (occurrence: None)
  Receive Date: 20100226
  Receipt Date: 20100226
  Transmission Date: 20100710
  Serious: Yes (Hospitalization)
  Sender: FDA-Public Use
  Company Number: None

PATIENT
  Sex: Female
  Weight: 4.0824 kg

DRUGS (3)
  1. SYNAGIS [Suspect]
     Indication: RESPIRATORY SYNCYTIAL VIRUS INFECTION
     Dosage: 15 MG/KG ONCE A MONTH IM
     Route: 030
     Dates: start: 20100202, end: 20100224
  2. POLYVISOL [Concomitant]
  3. ZANTAC [Concomitant]

REACTIONS (3)
  - ERYTHEMA [None]
  - LYMPHADENOPATHY [None]
  - STREPTOCOCCAL INFECTION [None]
